FAERS Safety Report 7280596-5 (Version None)
Quarter: 2011Q1

REPORT INFORMATION
  Report Type: 
  Country: None (occurrence: None)
  Receive Date: 20110126
  Receipt Date: 20110110
  Transmission Date: 20110831
  Serious: Yes (Hospitalization, Other)
  Sender: FDA-Public Use
  Company Number: 20110034

PATIENT
  Age: 69 Year
  Sex: Female

DRUGS (1)
  1. PHENYTOIN SODIUM INJECTION (40042-009-20) 50 MG/ML [Suspect]
     Indication: CONVULSION

REACTIONS (19)
  - TRACHEITIS [None]
  - TOXICITY TO VARIOUS AGENTS [None]
  - THROMBOCYTOPENIA [None]
  - COUGH [None]
  - HYPERSENSITIVITY [None]
  - ANAEMIA [None]
  - ELECTROCARDIOGRAM ST SEGMENT DEPRESSION [None]
  - ASTHENIA [None]
  - PYREXIA [None]
  - HYPOTENSION [None]
  - HYPOXIA [None]
  - BRONCHIAL SECRETION RETENTION [None]
  - STRIDOR [None]
  - FATIGUE [None]
  - LYMPHADENOPATHY [None]
  - HEPATITIS ACUTE [None]
  - DYSPNOEA [None]
  - WHEEZING [None]
  - CARDIAC ENZYMES INCREASED [None]
